FAERS Safety Report 17308092 (Version 2)
Quarter: 2020Q1

REPORT INFORMATION
  Report Type: Spontaneous
  Country: JP (occurrence: JP)
  Receive Date: 20200123
  Receipt Date: 20200317
  Transmission Date: 20200409
  Serious: Yes (Hospitalization)
  Sender: FDA-Public Use
  Company Number: NVSJ2020JP000681

PATIENT
  Age: 31 Year
  Sex: Male

DRUGS (3)
  1. LEVOMEPROMAZINE [Suspect]
     Active Substance: LEVOMEPROMAZINE
     Indication: INTELLECTUAL DISABILITY
     Dosage: UNK
     Route: 065
  2. RISPERIDONE. [Suspect]
     Active Substance: RISPERIDONE
     Indication: INTELLECTUAL DISABILITY
     Dosage: UNK
     Route: 065
  3. TEGRETOL [Suspect]
     Active Substance: CARBAMAZEPINE
     Indication: INTELLECTUAL DISABILITY
     Dosage: UNK
     Route: 048

REACTIONS (1)
  - Anaemia megaloblastic [Recovering/Resolving]

NARRATIVE: CASE EVENT DATE: 201711
